FAERS Safety Report 9916105 (Version 2)
Quarter: 2014Q2

REPORT INFORMATION
  Report Type: Spontaneous
  Country: IT (occurrence: IT)
  Receive Date: 20140221
  Receipt Date: 20140410
  Transmission Date: 20141212
  Serious: Yes (Hospitalization)
  Sender: FDA-Public Use
  Company Number: IT-BRISTOL-MYERS SQUIBB COMPANY-20211645

PATIENT
  Age: 83 Year
  Sex: Male

DRUGS (2)
  1. COUMADIN TABS 5 MG [Suspect]
     Indication: ATRIAL FIBRILLATION
     Dosage: 1DF = 1UNIT?INTERRUPTED ON 04JAN2014
     Route: 048
     Dates: start: 20120301
  2. AUGMENTIN [Concomitant]
     Dosage: 875/125MG TABLET
     Route: 048
     Dates: start: 20131228, end: 20140104

REACTIONS (4)
  - Haematoma [Recovered/Resolved]
  - Oedema peripheral [Recovered/Resolved]
  - Contusion [Recovered/Resolved]
  - International normalised ratio increased [Recovered/Resolved]
